FAERS Safety Report 13426352 (Version 1)
Quarter: 2017Q2

REPORT INFORMATION
  Report Type: Spontaneous
  Country: US (occurrence: US)
  Receive Date: 20170411
  Receipt Date: 20170411
  Transmission Date: 20170830
  Serious: Yes (Other)
  Sender: FDA-Public Use
  Company Number: US-AUROBINDO-AUR-APU-2016-02059

PATIENT
  Sex: Male

DRUGS (1)
  1. TRIMETHOPRIM+SULFAMETHOXAZOLE TABLET [Suspect]
     Active Substance: SULFAMETHOXAZOLE\TRIMETHOPRIM
     Indication: INFECTION
     Dosage: 1 TABLET, TWO TIMES A DAY
     Route: 065

REACTIONS (5)
  - Genital rash [Recovered/Resolved]
  - Rash [Recovered/Resolved]
  - Genital blister [Recovered/Resolved]
  - Hypersensitivity [Recovered/Resolved]
  - Genital burning sensation [Recovered/Resolved]
